FAERS Safety Report 9896885 (Version 1)
Quarter: 2014Q1

REPORT INFORMATION
  Report Type: Spontaneous
  Country: GB (occurrence: GB)
  Receive Date: 20140214
  Receipt Date: 20140214
  Transmission Date: 20141002
  Serious: Yes (Death, Other)
  Sender: FDA-Public Use
  Company Number: GB-PAR PHARMACEUTICAL, INC-2014SCPR008916

PATIENT
  Sex: 0

DRUGS (2)
  1. DOXYCYCLINE [Suspect]
     Indication: ACNE
     Dosage: 50 MG, / DAY
     Route: 065
     Dates: end: 201108
  2. DOXYCYCLINE [Suspect]
     Dosage: 100 MG, UNKNOWN
     Route: 065
     Dates: start: 201202

REACTIONS (5)
  - Completed suicide [Fatal]
  - Death [Fatal]
  - Depressed mood [Fatal]
  - Malaise [Recovered/Resolved]
  - Job dissatisfaction [Unknown]
